FAERS Safety Report 7496649-2 (Version None)
Quarter: 2011Q2

REPORT INFORMATION
  Report Type: 
  Country: None (occurrence: None)
  Receive Date: 20110523
  Receipt Date: 20110516
  Transmission Date: 20111010
  Serious: Yes (Other)
  Sender: FDA-Public Use
  Company Number: A0916976A

PATIENT
  Age: 55 Year
  Sex: Female

DRUGS (10)
  1. SUCRALFATE [Concomitant]
  2. ALBUTEROL SULFATE AUTOHALER [Concomitant]
     Route: 055
  3. FLOVENT [Suspect]
     Indication: ASTHMA
     Dosage: 2PUFF TWICE PER DAY
     Route: 055
     Dates: start: 20100101
  4. FEXOFENADINE [Concomitant]
  5. LISINOPRIL [Concomitant]
  6. ADVAIR DISKUS 100/50 [Suspect]
     Indication: ASTHMA
     Dosage: 1PUFF TWICE PER DAY
     Route: 055
     Dates: start: 20020101, end: 20090401
  7. CLONIDINE [Concomitant]
  8. EFFEXOR XR [Concomitant]
  9. SINGULAIR [Concomitant]
  10. SPIRIVA [Suspect]
     Indication: ASTHMA
     Dates: start: 20020101, end: 20080301

REACTIONS (8)
  - ASTHMA [None]
  - BLOOD PRESSURE DIASTOLIC INCREASED [None]
  - MALAISE [None]
  - CHEST PAIN [None]
  - DRUG INEFFECTIVE [None]
  - BLOOD PRESSURE INCREASED [None]
  - PRODUCT QUALITY ISSUE [None]
  - INHALATION THERAPY [None]
